FAERS Safety Report 17902362 (Version 1)
Quarter: 2020Q2

REPORT INFORMATION
  Report Type: Spontaneous
  Country: DE (occurrence: DE)
  Receive Date: 20200617
  Receipt Date: 20200617
  Transmission Date: 20200714
  Serious: Yes (Life-Threatening, Hospitalization, Other)
  Sender: FDA-Public Use
  Company Number: DE-TEVA-2020-DE-1445384

PATIENT
  Age: 82 Year
  Sex: Female

DRUGS (10)
  1. METAMIZOL HEUMANN 500MG [Concomitant]
     Dosage: 500 MG, NEED
  2. PANTOPRAZOL HENNIG 40MG [Concomitant]
     Dosage: 40 MILLIGRAM DAILY; 1-0-0-0
  3. COTRIM [Suspect]
     Active Substance: SULFAMETHOXAZOLE\TRIMETHOPRIM
     Dosage: 1X
  4. XARELTO [Concomitant]
     Active Substance: RIVAROXABAN
     Dosage: 15 MILLIGRAM DAILY; 1-0-0-0
  5. PROPRA-RATIOPHARM 80MG [Concomitant]
     Dosage: 80 MG, 1-1-1-0 ,UNIT DOSE :240 MILLIGRAM
  6. CALCIUM AL 500 BRAUSETABLETTEN [Concomitant]
     Dosage: 500 MILLIGRAM DAILY; 1-0-0-0
  7. CANDESARTAN HEUMANN 16MG [Concomitant]
     Dosage: 32 MILLIGRAM DAILY; 1-0-1-0
  8. NIFEDIPIN AL 10 [Concomitant]
     Dosage: 10 MG, NEED,
  9. TORASEMID-1A PHARMA 10MG [Concomitant]
     Dosage: 5 MILLIGRAM DAILY; 10 MG, 0.5-0-0-0
  10. MACROGOL ABZ [Concomitant]
     Dosage: 1 DOSAGE FORMS DAILY; 1-0-0-0

REACTIONS (2)
  - Cardiac arrest [Unknown]
  - Product prescribing error [Unknown]

NARRATIVE: CASE EVENT DATE: 20190916
